FAERS Safety Report 6839768-3 (Version None)
Quarter: 2010Q3

REPORT INFORMATION
  Report Type: 
  Country: None (occurrence: None)
  Receive Date: 20100714
  Receipt Date: 20100706
  Transmission Date: 20110219
  Serious: Yes (Other)
  Sender: FDA-Public Use
  Company Number: JP-PFIZER INC-2010042227

PATIENT
  Age: 61 Year
  Sex: Female

DRUGS (2)
  1. ZOLOFT [Suspect]
     Indication: DEPRESSION
     Dosage: 25 MG/DAY
     Route: 048
  2. ZOLOFT [Suspect]
     Dosage: 50 MG/DAY
     Route: 048
     Dates: start: 20100301

REACTIONS (1)
  - CHROMATURIA [None]
